FAERS Safety Report 22242150 (Version 1)
Quarter: 2023Q2

REPORT INFORMATION
  Report Type: Spontaneous
  Country: BE (occurrence: BE)
  Receive Date: 20230421
  Receipt Date: 20230421
  Transmission Date: 20230722
  Serious: Yes (Death, Life-Threatening, Hospitalization)
  Sender: FDA-Public Use
  Company Number: None

PATIENT
  Age: 76 Year
  Sex: Male
  Weight: 57 kg

DRUGS (16)
  1. KEYTRUDA [Suspect]
     Active Substance: PEMBROLIZUMAB
     Indication: Targeted cancer therapy
     Dosage: 200 MG
     Route: 042
     Dates: start: 20230126, end: 20230218
  2. PEMETREXED DISODIUM HEMIPENTAHYDRATE [Suspect]
     Active Substance: PEMETREXED DISODIUM HEMIPENTAHYDRATE
     Indication: Neoplasm malignant
     Dosage: 500 MG
     Route: 042
     Dates: start: 20230126, end: 20230218
  3. CARBOPLATIN [Suspect]
     Active Substance: CARBOPLATIN
     Indication: Neoplasm malignant
     Dosage: 385 MG
     Route: 042
     Dates: start: 20230126, end: 20230218
  4. POLYETHYLENE GLYCOL 3350\POTASSIUM CHLORIDE\SODIUM BICARBONATE\SODIUM [Concomitant]
     Active Substance: POLYETHYLENE GLYCOL 3350\POTASSIUM CHLORIDE\SODIUM BICARBONATE\SODIUM CHLORIDE
     Dosage: UNK
  5. FOLIC ACID [Concomitant]
     Active Substance: FOLIC ACID
     Dosage: 0.4 MILLIGRAM, QD
  6. MELATONIN [Concomitant]
     Active Substance: MELATONIN
     Dosage: AT BEDTIME
  7. ALIZAPRIDE HYDROCHLORIDE [Concomitant]
     Active Substance: ALIZAPRIDE HYDROCHLORIDE
     Indication: Nausea
     Dosage: MAXIMUM 6 AMPOULES PER DAY IF NAUSEA
  8. DIAZEPAM [Concomitant]
     Active Substance: DIAZEPAM
     Dosage: AT BEDTIME
  9. TRAMADOL HYDROCHLORIDE [Concomitant]
     Active Substance: TRAMADOL HYDROCHLORIDE
     Indication: Pain
     Dosage: MAXIMUM 8 TIMES A DAY IF PAIN
  10. COLCHICINE [Concomitant]
     Active Substance: COLCHICINE
     Dosage: 1/2 (0.5 MG) TABLET TWICE DAILY (MORNING AND EVENING)
  11. MOTILIUM [Concomitant]
     Active Substance: DOMPERIDONE
     Indication: Nausea
     Dosage: MAXIMUM 3 AMPOULES PER DAY IF NAUSEA
  12. OXYCODONE HYDROCHLORIDE [Concomitant]
     Active Substance: OXYCODONE HYDROCHLORIDE
     Indication: Pain
     Dosage: MAXIMUM 6 TIMES A DAY IF PAIN
  13. NEUROBION [Concomitant]
     Active Substance: CYANOCOBALAMIN\PYRIDOXINE\THIAMINE
     Dosage: Q9W
  14. DAFALGAN [Concomitant]
     Active Substance: ACETAMINOPHEN
     Indication: Pain
     Dosage: MAXIMUM 3 TIMES A DAY IF PAIN
  15. CYANOCOBALAMIN\PYRIDOXINE\RIBOFLAVIN\THIAMINE [Concomitant]
     Active Substance: CYANOCOBALAMIN\PYRIDOXINE\RIBOFLAVIN\THIAMINE
  16. PANTOMED [DEXPANTHENOL] [Concomitant]
     Dosage: WITH AN EMPTY STOMACH

REACTIONS (3)
  - Aortic dissection rupture [Fatal]
  - Penetrating aortic ulcer [Fatal]
  - Aortic dissection [Fatal]

NARRATIVE: CASE EVENT DATE: 20230308
